FAERS Safety Report 12876496 (Version 1)
Quarter: 2016Q4

REPORT INFORMATION
  Report Type: Spontaneous
  Country: US (occurrence: US)
  Receive Date: 20161021
  Receipt Date: 20161021
  Transmission Date: 20170207
  Serious: No
  Sender: FDA-Public Use
  Company Number: None

PATIENT
  Age: 45 Year
  Sex: Male
  Weight: 90.8 kg

DRUGS (6)
  1. VITAMIN D3 [Concomitant]
     Active Substance: CHOLECALCIFEROL
  2. OTEZLA [Suspect]
     Active Substance: APREMILAST
     Indication: PSORIASIS
     Route: 048
     Dates: start: 2015
  3. K2 [Concomitant]
     Active Substance: JWH-018
  4. ZINC [Concomitant]
     Active Substance: ZINC\ZINC CHLORIDE
  5. SUPPLEMENTS [Suspect]
     Active Substance: UNSPECIFIED INGREDIENT
  6. MAGNESIUM [Concomitant]
     Active Substance: MAGNESIUM

REACTIONS (3)
  - Tendonitis [None]
  - Epicondylitis [None]
  - Dyspepsia [None]

NARRATIVE: CASE EVENT DATE: 2015
